FAERS Safety Report 11995006 (Version 1)
Quarter: 2016Q1

REPORT INFORMATION
  Report Type: Spontaneous
  Country: US (occurrence: US)
  Receive Date: 20160203
  Receipt Date: 20160203
  Transmission Date: 20160526
  Serious: No
  Sender: FDA-Public Use
  Company Number: US-UCBSA-2014020732

PATIENT
  Age: 52 Year
  Sex: Female

DRUGS (3)
  1. KEPPRA XR [Suspect]
     Active Substance: LEVETIRACETAM
     Indication: SEIZURE
     Dosage: 750MG/6DAY
     Dates: start: 201410, end: 2014
  2. KEPPRA XR [Suspect]
     Active Substance: LEVETIRACETAM
     Dosage: THE DOSE WAS CHANGED TO 750 MG
     Dates: start: 20141130
  3. KEPPRA XR [Suspect]
     Active Substance: LEVETIRACETAM
     Dosage: 500 MG
     Dates: start: 2014, end: 2014

REACTIONS (4)
  - Off label use [Unknown]
  - Seizure [Not Recovered/Not Resolved]
  - Overdose [Unknown]
  - Drug ineffective [Unknown]

NARRATIVE: CASE EVENT DATE: 2014
